FAERS Safety Report 7765010-5 (Version None)
Quarter: 2011Q3

REPORT INFORMATION
  Report Type: 
  Country: None (occurrence: None)
  Receive Date: 20110921
  Receipt Date: 20110908
  Transmission Date: 20111222
  Serious: Yes (Hospitalization, Other)
  Sender: FDA-Public Use
  Company Number: IE-ROCHE-801629

PATIENT
  Sex: Female

DRUGS (3)
  1. TAXOTERE [Suspect]
     Indication: BREAST CANCER STAGE IV
     Dosage: DOSE AND FREQUENCY: NOT REPORTED
     Route: 064
     Dates: start: 20110725
  2. HERCEPTIN [Suspect]
     Dosage: DOSE: NOT REPORTED, FREQUENCY: WEEKLY
     Route: 064
     Dates: start: 20110815
  3. HERCEPTIN [Suspect]
     Indication: BREAST CANCER STAGE IV
     Dosage: DOSE: NOT REPORTED, FREQUENCY: 3 WEEKLY, HELD
     Route: 064
     Dates: start: 20110725, end: 20110815

REACTIONS (2)
  - AMNIOTIC FLUID VOLUME DECREASED [None]
  - PREMATURE DELIVERY [None]
